FAERS Safety Report 4953096-2 (Version None)
Quarter: 2006Q1

REPORT INFORMATION
  Report Type: 
  Country: None (occurrence: None)
  Receive Date: 20060324
  Receipt Date: 20011022
  Transmission Date: 20060701
  Serious: Yes (Death, Life-Threatening, Hospitalization)
  Sender: FDA-Public Use
  Company Number: 2001AP05251

PATIENT
  Age: 44 Year
  Sex: Male

DRUGS (10)
  1. AMITRIPTYLINE [Suspect]
     Route: 048
  2. OMEPRAZOLE [Suspect]
     Route: 048
  3. PROPOXYPHENE [Suspect]
  4. CLONAZEPAM [Suspect]
  5. OXYBUTYNIN [Suspect]
  6. CYCLOBENZAPRINE [Suspect]
  7. BACLOFEN [Suspect]
  8. CISAPRIDE [Suspect]
  9. DIOSMIN [Suspect]
  10. GLYCOPYRRALATE [Suspect]

REACTIONS (5)
  - CARDIAC ARREST [None]
  - COMPLETED SUICIDE [None]
  - DEPRESSED LEVEL OF CONSCIOUSNESS [None]
  - GRAND MAL CONVULSION [None]
  - INTENTIONAL OVERDOSE [None]
